FAERS Safety Report 12729723 (Version 1)
Quarter: 2016Q3

REPORT INFORMATION
  Report Type: Report from Study
  Country: DE (occurrence: DE)
  Receive Date: 20160909
  Receipt Date: 20160909
  Transmission Date: 20161109
  Serious: Yes (Hospitalization, Other)
  Sender: FDA-Public Use
  Company Number: DE-TEVA-690637ROM

PATIENT
  Age: 61 Year
  Sex: Female
  Weight: 63.3 kg

DRUGS (3)
  1. TREOSULFAN [Suspect]
     Active Substance: TREOSULFAN
     Dosage: 20 GRAM DAILY;
     Dates: start: 20160630, end: 20160702
  2. FLUDARABINE [Suspect]
     Active Substance: FLUDARABINE PHOSPHATE
     Dosage: 50 MILLIGRAM DAILY;
     Dates: start: 20160627, end: 20160629
  3. THIOTEPA. [Suspect]
     Active Substance: THIOTEPA
     Dosage: 300 MILLIGRAM DAILY;
     Dates: start: 20160627, end: 20160629

REACTIONS (1)
  - Hypernatraemia [Recovered/Resolved]

NARRATIVE: CASE EVENT DATE: 20160712
